FAERS Safety Report 14839940 (Version 1)
Quarter: 2018Q2

REPORT INFORMATION
  Report Type: Spontaneous
  Country: MY (occurrence: MY)
  Receive Date: 20180503
  Receipt Date: 20180503
  Transmission Date: 20180711
  Serious: Yes (Other)
  Sender: FDA-Public Use
  Company Number: MY-B.I. PHARMACEUTICALS,INC./RIDGEFIELD-2018-BI-022970

PATIENT

DRUGS (1)
  1. GILOTRIF [Suspect]
     Active Substance: AFATINIB
     Indication: NON-SMALL CELL LUNG CANCER
     Route: 065

REACTIONS (1)
  - Malignant neoplasm progression [Unknown]
